FAERS Safety Report 25691518 (Version 1)
Quarter: 2025Q3

REPORT INFORMATION
  Report Type: Spontaneous
  Country: AU (occurrence: SA)
  Receive Date: 20250818
  Receipt Date: 20250818
  Transmission Date: 20251021
  Serious: Yes (Other)
  Sender: AMGEN
  Company Number: AU-AMGEN-SAUSP2025158216

PATIENT

DRUGS (1)
  1. ADALIMUMAB [Suspect]
     Active Substance: ADALIMUMAB
     Indication: Product used for unknown indication
     Route: 065

REACTIONS (25)
  - Renal failure [Unknown]
  - Anaphylactic reaction [Unknown]
  - Stevens-Johnson syndrome [Unknown]
  - Thrombocytopenia [Unknown]
  - Hepatitis acute [Unknown]
  - Hyperkalaemia [Unknown]
  - Jaundice [Unknown]
  - Gastritis [Unknown]
  - Cough [Unknown]
  - Palpitations [Unknown]
  - Haemorrhage [Unknown]
  - Rash [Unknown]
  - Oedema [Unknown]
  - Pruritus [Unknown]
  - Erythema [Unknown]
  - Nausea [Unknown]
  - Vomiting [Unknown]
  - Diarrhoea [Unknown]
  - Dyspepsia [Unknown]
  - Constipation [Unknown]
  - Flatulence [Unknown]
  - Dizziness [Unknown]
  - Myalgia [Unknown]
  - Headache [Unknown]
  - Hyperglycaemia [Unknown]
